FAERS Safety Report 10675020 (Version 4)
Quarter: 2015Q1

REPORT INFORMATION
  Report Type: Spontaneous
  Country: IR (occurrence: IR)
  Receive Date: 20141224
  Receipt Date: 20150128
  Transmission Date: 20150720
  Serious: Yes (Hospitalization, Other)
  Sender: FDA-Public Use
  Company Number: IR-JNJFOC-20141212816

PATIENT

DRUGS (5)
  1. TRAMADOL HYDROCHLORIDE. [Suspect]
     Active Substance: TRAMADOL HYDROCHLORIDE
     Indication: SUICIDE ATTEMPT
     Route: 048
  2. TRAMADOL HYDROCHLORIDE. [Suspect]
     Active Substance: TRAMADOL HYDROCHLORIDE
     Indication: DRUG ABUSE
     Route: 048
  3. TRAMADOL HYDROCHLORIDE. [Suspect]
     Active Substance: TRAMADOL HYDROCHLORIDE
     Indication: PAIN
     Route: 048
  4. TRAMADOL HYDROCHLORIDE. [Suspect]
     Active Substance: TRAMADOL HYDROCHLORIDE
     Indication: DRUG ABUSE
     Route: 048
  5. TRAMADOL HYDROCHLORIDE. [Suspect]
     Active Substance: TRAMADOL HYDROCHLORIDE
     Indication: SUICIDE ATTEMPT
     Route: 048

REACTIONS (22)
  - Rhabdomyolysis [Unknown]
  - Dizziness [Unknown]
  - Hyperhidrosis [Unknown]
  - Nausea [Unknown]
  - Somnolence [Unknown]
  - Drug abuse [Unknown]
  - Seizure [Unknown]
  - Altered state of consciousness [Unknown]
  - Suicide attempt [Unknown]
  - Vision blurred [Unknown]
  - Anxiety [Unknown]
  - Respiratory depression [Unknown]
  - Intentional product misuse [Unknown]
  - Ataxia [Unknown]
  - Respiratory acidosis [Unknown]
  - Apnoea [Unknown]
  - Vomiting [Unknown]
  - Lethargy [Unknown]
  - Nystagmus [Unknown]
  - Coma [Unknown]
  - Toxicity to various agents [Unknown]
  - Blood creatine phosphokinase increased [Unknown]
